FAERS Safety Report 7711988-5 (Version None)
Quarter: 2011Q3

REPORT INFORMATION
  Report Type: 
  Country: None (occurrence: None)
  Receive Date: 20110826
  Receipt Date: 20110817
  Transmission Date: 20111222
  Serious: Yes (Death, Hospitalization)
  Sender: FDA-Public Use
  Company Number: CA-JNJFOC-20110704140

PATIENT
  Sex: Female

DRUGS (1)
  1. REMICADE [Suspect]
     Indication: RHEUMATOID ARTHRITIS
     Route: 042
     Dates: start: 20041001, end: 20110525

REACTIONS (4)
  - DIARRHOEA [None]
  - VOMITING [None]
  - ANGINA PECTORIS [None]
  - LUNG NEOPLASM MALIGNANT [None]
